FAERS Safety Report 25375415 (Version 1)
Quarter: 2025Q2

REPORT INFORMATION
  Report Type: Spontaneous
  Country: US (occurrence: None)
  Receive Date: 20250527
  Receipt Date: 20250527
  Transmission Date: 20250717
  Serious: Yes (Hospitalization)
  Sender: FDA-CTU
  Company Number: None

PATIENT
  Age: 55 Year
  Sex: Female

DRUGS (1)
  1. DESFLURANE [Suspect]
     Active Substance: DESFLURANE

REACTIONS (3)
  - Anaesthetic complication [None]
  - Incorrect dose administered by device [None]
  - Hypotension [None]

NARRATIVE: CASE EVENT DATE: 20250512
